FAERS Safety Report 24636887 (Version 1)
Quarter: 2024Q4

REPORT INFORMATION
  Report Type: Spontaneous
  Country: US (occurrence: None)
  Receive Date: 20241118
  Receipt Date: 20241118
  Transmission Date: 20250114
  Serious: Yes (Hospitalization)
  Sender: Public
  Company Number: None

PATIENT
  Age: 54 Year
  Sex: Female
  Weight: 50.4 kg

DRUGS (11)
  1. GAMUNEX-C [Suspect]
     Active Substance: HUMAN IMMUNOGLOBULIN G
     Indication: Chronic inflammatory demyelinating polyradiculoneuropathy
     Dosage: 40 G GRM(S) MONTHLY  INTRAVENOUS?
     Route: 042
     Dates: start: 20241106, end: 20241107
  2. Acetaminophen 325-650mg PO (infusion premed) [Concomitant]
  3. Prednisone 10mg PO Qday [Concomitant]
  4. Voltaren 1% topical Qday [Concomitant]
  5. Lidocaine 5% topical Qday [Concomitant]
  6. Hydroxocobalamin 1000mcg/mL [Concomitant]
  7. Lexapro 10mg PO Qday [Concomitant]
  8. Pyridostigmine 180mg PO [Concomitant]
  9. Methocarbamol 500mg PO BID [Concomitant]
  10. Maxalt-MLT 10mg [Concomitant]
  11. Mestinon 60mg PO TID [Concomitant]

REACTIONS (1)
  - Thrombosis [None]
